FAERS Safety Report 12823851 (Version 1)
Quarter: 2016Q4

REPORT INFORMATION
  Report Type: Spontaneous
  Country: US (occurrence: US)
  Receive Date: 20161007
  Receipt Date: 20161007
  Transmission Date: 20170207
  Serious: No
  Sender: FDA-Public Use
  Company Number: US-GLAXOSMITHKLINE-US2016145160

PATIENT
  Age: 82 Year
  Sex: Female

DRUGS (3)
  1. XGEVA [Concomitant]
     Active Substance: DENOSUMAB
     Indication: NEOPLASM MALIGNANT
     Dosage: UNK
  2. VOLTAREN [Suspect]
     Active Substance: DICLOFENAC SODIUM
     Indication: ARTHRALGIA
     Dosage: UNK, QD, DOES NOT HAVE MORE THAN 10 GRAMS USED ON HER EACH DAY
     Dates: start: 20160830
  3. VOLTAREN [Suspect]
     Active Substance: DICLOFENAC SODIUM
     Indication: CANCER PAIN

REACTIONS (3)
  - Drug administered at inappropriate site [Unknown]
  - Intentional product use issue [Unknown]
  - Wrong technique in product usage process [Unknown]
